FAERS Safety Report 5465946-4 (Version None)
Quarter: 2007Q3

REPORT INFORMATION
  Report Type: 
  Country: None (occurrence: None)
  Receive Date: 20070924
  Receipt Date: 20070917
  Transmission Date: 20080115
  Serious: Yes (Other)
  Sender: FDA-Public Use
  Company Number: SE-SHR-SE-2007-035082

PATIENT

DRUGS (1)
  1. LEVONORGESTREL [Suspect]
     Dosage: 20 A?G, CONT
     Dates: end: 20061218

REACTIONS (2)
  - ASPHYXIA [None]
  - MECONIUM IN AMNIOTIC FLUID [None]
